FAERS Safety Report 7737622-6 (Version None)
Quarter: 2011Q3

REPORT INFORMATION
  Report Type: 
  Country: None (occurrence: None)
  Receive Date: 20110902
  Receipt Date: 20110826
  Transmission Date: 20111222
  Serious: Yes (Other)
  Sender: FDA-Public Use
  Company Number: EU-2011-10158

PATIENT
  Age: 62 Year
  Sex: Male

DRUGS (5)
  1. CILOSTAZOL [Suspect]
     Indication: INTERMITTENT CLAUDICATION
     Dosage: 200 MG MILLIGRAM(S), DAILY DOSE, ORAL
     Route: 048
     Dates: start: 20090904, end: 20110102
  2. OMEPRAZOLE [Suspect]
     Dosage: 20 MG MILLIGRAM(S), DAILY DOSE, ORAL
     Route: 048
     Dates: start: 20101018
  3. CARVEDILOL [Concomitant]
  4. ASPIRIN [Concomitant]
  5. ATORVASTATIN [Suspect]
     Dosage: 20 MG MILLIGRAM(S), DAILY DOSE, ORAL
     Route: 048
     Dates: start: 20101210

REACTIONS (4)
  - TACHYCARDIA [None]
  - AMAUROSIS [None]
  - DRUG INTERACTION [None]
  - ANXIETY [None]
